FAERS Safety Report 22298828 (Version 1)
Quarter: 2023Q2

REPORT INFORMATION
  Report Type: Spontaneous
  Country: US (occurrence: None)
  Receive Date: 20230508
  Receipt Date: 20230508
  Transmission Date: 20230721
  Serious: No
  Sender: FDA-Public Use
  Company Number: None

PATIENT
  Age: 81 Year
  Sex: Female

DRUGS (8)
  1. CAPECITABINE [Suspect]
     Active Substance: CAPECITABINE
     Indication: Breast cancer
     Dosage: OTHER FREQUENCY : IN AM AND 2 TAB IN;?
     Route: 048
  2. ACETAMINOPHEN AND CODEINE [Concomitant]
     Active Substance: ACETAMINOPHEN\CODEINE PHOSPHATE
  3. BENZONATATE [Concomitant]
     Active Substance: BENZONATATE
  4. ENTRESTO [Concomitant]
     Active Substance: SACUBITRIL\VALSARTAN
  5. METHIMAZOLE [Concomitant]
     Active Substance: METHIMAZOLE
  6. METOPROLOL SUCCINATE [Concomitant]
     Active Substance: METOPROLOL SUCCINATE
  7. TORSEMIDE [Concomitant]
     Active Substance: TORSEMIDE
  8. VITAMIN D [Concomitant]

REACTIONS (2)
  - Pulmonary oedema [None]
  - Therapy interrupted [None]

NARRATIVE: CASE EVENT DATE: 20230428
